FAERS Safety Report 4303020-0 (Version None)
Quarter: 2004Q1

REPORT INFORMATION
  Report Type: 
  Country: None (occurrence: None)
  Receive Date: 20040224
  Receipt Date: 20040213
  Transmission Date: 20041129
  Serious: Yes (Hospitalization)
  Sender: FDA-Public Use
  Company Number: WAES 0402AUS00104

PATIENT
  Age: 71 Year
  Sex: Male

DRUGS (7)
  1. ASPIRIN [Concomitant]
  2. CALCIUM CARBONATE [Concomitant]
  3. DILTIAZEM HYDROCHLORIDE [Concomitant]
  4. GEMFIBROZIL [Suspect]
     Route: 048
     Dates: start: 19991031, end: 19991109
  5. ISOSORBIDE MONONITRATE [Concomitant]
  6. METOPROLOL [Concomitant]
  7. ZOCOR [Suspect]
     Route: 048

REACTIONS (4)
  - ASTHENIA [None]
  - BLOOD CREATINE PHOSPHOKINASE INCREASED [None]
  - MYOSITIS [None]
  - RHABDOMYOLYSIS [None]
